FAERS Safety Report 5249842-3 (Version None)
Quarter: 2007Q1

REPORT INFORMATION
  Report Type: 
  Country: None (occurrence: None)
  Receive Date: 20070228
  Receipt Date: 20070221
  Transmission Date: 20070707
  Serious: Yes (Death)
  Sender: FDA-Public Use
  Company Number: NO-GLAXOSMITHKLINE-B0408595A

PATIENT
  Age: 32 Year
  Sex: Male

DRUGS (2)
  1. SEROXAT [Suspect]
     Route: 048
     Dates: start: 20041129
  2. LAMICTAL [Concomitant]

REACTIONS (3)
  - ABDOMINAL PAIN UPPER [None]
  - COMPLETED SUICIDE [None]
  - VOMITING [None]
